FAERS Safety Report 8958453 (Version 1)
Quarter: 2012Q4

REPORT INFORMATION
  Report Type: Spontaneous
  Country: US (occurrence: None)
  Receive Date: 20121205
  Receipt Date: 20121205
  Transmission Date: 20130627
  Serious: Yes (Hospitalization)
  Sender: FDA-Public Use
  Company Number: None

PATIENT
  Age: 81 Year
  Sex: Male
  Weight: 88 kg

DRUGS (1)
  1. DOXYCYCLINE [Suspect]
     Indication: CELLULITIS
     Route: 048
     Dates: start: 20120925, end: 20120926

REACTIONS (4)
  - Tachycardia [None]
  - Rash [None]
  - Urticaria [None]
  - Pruritus [None]
